FAERS Safety Report 9075171 (Version 1)
Quarter: 2013Q1

REPORT INFORMATION
  Report Type: Spontaneous
  Country: US (occurrence: US)
  Receive Date: 20130131
  Receipt Date: 20130131
  Transmission Date: 20140127
  Serious: No
  Sender: FDA-Public Use
  Company Number: US-ABBOTT-12P-163-1006369-00

PATIENT
  Age: 41 Year
  Sex: Female
  Weight: 65.83 kg

DRUGS (3)
  1. HUMIRA [Suspect]
     Indication: GRANULOMA ANNULARE
     Dosage: BASELINE
     Dates: start: 20121031, end: 20121031
  2. HUMIRA [Suspect]
     Dates: start: 20121106
  3. CELEXA [Concomitant]
     Indication: ANXIETY

REACTIONS (7)
  - Wrong technique in drug usage process [Unknown]
  - Incorrect dose administered [Unknown]
  - Injection site pain [Not Recovered/Not Resolved]
  - Off label use [Unknown]
  - Injection site erythema [Unknown]
  - Injection site papule [Unknown]
  - Injection site pruritus [Unknown]
